FAERS Safety Report 17527640 (Version 1)
Quarter: 2020Q1

REPORT INFORMATION
  Report Type: Spontaneous
  Country: DE (occurrence: DE)
  Receive Date: 20200311
  Receipt Date: 20200311
  Transmission Date: 20200409
  Serious: Yes (Hospitalization, Other)
  Sender: FDA-Public Use
  Company Number: DE-JNJFOC-20200243056

PATIENT
  Age: 68 Year
  Sex: Female
  Weight: 60 kg

DRUGS (5)
  1. ZOMETA [Suspect]
     Active Substance: ZOLEDRONIC ACID
     Indication: METASTASES TO BONE
     Dosage: 4 MILLIGRAM, 1/MONTH
     Route: 042
     Dates: start: 200308
  2. FEMARA [Suspect]
     Active Substance: LETROZOLE
     Indication: METASTASES TO BONE
     Dosage: 2.5 MILLIGRAM, 1/DAY
     Route: 048
     Dates: start: 200308
  3. TRAMADOL HYDROCHLORIDE. [Suspect]
     Active Substance: TRAMADOL HYDROCHLORIDE
     Indication: PAIN
     Dosage: UNK UNK, AS NEEDED
     Route: 065
  4. APROVEL [Suspect]
     Active Substance: IRBESARTAN
     Indication: HYPERTENSION
     Dosage: 150 MILLIGRAM, 1/DAY
     Route: 048
  5. ACETYLSALICYLIC ACID [Suspect]
     Active Substance: ASPIRIN
     Indication: PROPHYLAXIS
     Dosage: 100 MILLIGRAM, 1/DAY
     Route: 048

REACTIONS (2)
  - Jaw disorder [Unknown]
  - Osteonecrosis [Unknown]

NARRATIVE: CASE EVENT DATE: 200501
